FAERS Safety Report 22211196 (Version 5)
Quarter: 2025Q2

REPORT INFORMATION
  Report Type: Report from Study
  Country: US (occurrence: US)
  Receive Date: 20230414
  Receipt Date: 20250513
  Transmission Date: 20250717
  Serious: Yes (Hospitalization, Other)
  Sender: UCB
  Company Number: US-UCBSA-2023018935

PATIENT
  Age: 15 Year
  Sex: Male
  Weight: 103 kg

DRUGS (9)
  1. FINTEPLA [Suspect]
     Active Substance: FENFLURAMINE
     Indication: Severe myoclonic epilepsy of infancy
     Dosage: 4 MILLILITER, 2X/DAY (BID)
     Dates: start: 20210606
  2. FINTEPLA [Suspect]
     Active Substance: FENFLURAMINE
     Indication: Epilepsy
  3. FINTEPLA [Suspect]
     Active Substance: FENFLURAMINE
  4. FINTEPLA [Suspect]
     Active Substance: FENFLURAMINE
  5. FINTEPLA [Suspect]
     Active Substance: FENFLURAMINE
     Dosage: 5.1 MILLILITER, 2X/DAY (BID)
  6. FINTEPLA [Suspect]
     Active Substance: FENFLURAMINE
  7. FINTEPLA [Suspect]
     Active Substance: FENFLURAMINE
     Dosage: 4 MILLILITER, 2X/DAY (BID)
     Dates: start: 20250219
  8. ONFI [Concomitant]
     Active Substance: CLOBAZAM
     Indication: Epilepsy
     Dosage: 10 MILLIGRAM, 2X/DAY (BID) 1.5 TABLETS
     Dates: start: 20131224
  9. TOPIRAMATE [Concomitant]
     Active Substance: TOPIRAMATE
     Indication: Epilepsy
     Dosage: 25 MILLIGRAM, 2X/DAY (BID) 2 CAPSULE AM AND 3 CAPSULE PM
     Dates: start: 20131226

REACTIONS (3)
  - Scoliosis surgery [Not Recovered/Not Resolved]
  - Left ventricular dysfunction [Unknown]
  - Scoliosis [Not Recovered/Not Resolved]

NARRATIVE: CASE EVENT DATE: 20230410
